FAERS Safety Report 7131087-3 (Version None)
Quarter: 2010Q4

REPORT INFORMATION
  Report Type: 
  Country: None (occurrence: None)
  Receive Date: 20101124
  Receipt Date: 20101124
  Transmission Date: 20110411
  Serious: No
  Sender: FDA-Public Use
  Company Number: None

PATIENT
  Age: 53 Year
  Sex: Female
  Weight: 86.1834 kg

DRUGS (1)
  1. LISINOPRIL [Suspect]
     Dosage: 10 ONCE PER DAY

REACTIONS (4)
  - COUGH [None]
  - DYSPNOEA [None]
  - INSOMNIA [None]
  - PHARYNGEAL OEDEMA [None]
